FAERS Safety Report 12739938 (Version 1)
Quarter: 2016Q3

REPORT INFORMATION
  Report Type: Report from Study
  Country: NL (occurrence: NL)
  Receive Date: 20160913
  Receipt Date: 20160913
  Transmission Date: 20161109
  Serious: Yes (Disabling, Other)
  Sender: FDA-Public Use
  Company Number: NL-ABBVIE-16P-114-1724417-00

PATIENT
  Age: 44 Year
  Sex: Female
  Weight: 92 kg

DRUGS (5)
  1. FENPROCOUMON [Concomitant]
     Active Substance: PHENPROCOUMON
     Indication: ANTICOAGULANT THERAPY
     Route: 048
     Dates: start: 2006
  2. METOPROLOL. [Concomitant]
     Active Substance: METOPROLOL
     Indication: CARDIAC DISORDER
     Route: 048
     Dates: start: 2006
  3. EMSELEX [Concomitant]
     Active Substance: DARIFENACIN HYDROBROMIDE
     Indication: BLADDER DISORDER
     Route: 048
     Dates: start: 2006
  4. LUCRIN DEPOT [Suspect]
     Active Substance: LEUPROLIDE ACETATE
     Indication: MENORRHAGIA
     Route: 050
     Dates: start: 20160606, end: 20160606
  5. TAMBOCOR [Concomitant]
     Active Substance: FLECAINIDE ACETATE
     Indication: CARDIAC DISORDER
     Route: 048
     Dates: start: 2006

REACTIONS (5)
  - Administration site pain [Recovered/Resolved]
  - Acne [Recovering/Resolving]
  - Headache [Recovering/Resolving]
  - Activities of daily living impaired [Recovering/Resolving]
  - Breast pain [Recovered/Resolved]

NARRATIVE: CASE EVENT DATE: 201606
